FAERS Safety Report 9857870 (Version 3)
Quarter: 2014Q1

REPORT INFORMATION
  Report Type: Spontaneous
  Country: FR (occurrence: FR)
  Receive Date: 20140131
  Receipt Date: 20140313
  Transmission Date: 20141002
  Serious: Yes (Hospitalization)
  Sender: FDA-Public Use
  Company Number: FR-AMGEN-FRASP2014006513

PATIENT
  Age: 44 Year
  Sex: Female

DRUGS (4)
  1. NEULASTA [Suspect]
     Indication: NEUTROPENIA
     Dosage: 6 MG, AS NECESSARY
     Route: 042
     Dates: start: 20131214
  2. HERCEPTIN [Suspect]
     Indication: INVASIVE DUCTAL BREAST CARCINOMA
     Dosage: 150 MG, POWDER TO DILUTE FOR INFUSION 650 MG 1 N 1 CYCLICAL
     Route: 041
     Dates: start: 20131213, end: 20131213
  3. TAXOTERE [Suspect]
     Indication: PRODUCT USED FOR UNKNOWN INDICATION
     Dosage: 650 MG/8ML, 650 MG ONE IN ONE CYCLE
     Route: 042
     Dates: start: 20131213
  4. TAXOTERE [Suspect]
     Dosage: 160MG/8ML, (190 MG, 1 IN 1 CYCLICAL)
     Route: 041
     Dates: start: 20131213

REACTIONS (2)
  - Chest pain [Recovered/Resolved]
  - Spinal pain [Recovered/Resolved]
